FAERS Safety Report 18035326 (Version 1)
Quarter: 2020Q3

REPORT INFORMATION
  Report Type: Spontaneous
  Country: US (occurrence: US)
  Receive Date: 20200715
  Receipt Date: 20200715
  Transmission Date: 20201103
  Serious: No
  Sender: FDA-Public Use
  Company Number: None

PATIENT

DRUGS (2)
  1. RISPERRIDONE RISPERIDONE [Suspect]
     Active Substance: RISPERIDONE
     Route: 048
  2. ROPINIROLE HCL ROPINIROLE [Suspect]
     Active Substance: ROPINIROLE HYDROCHLORIDE
     Route: 048

REACTIONS (4)
  - Product dispensing error [None]
  - Wrong product administered [None]
  - Tremor [None]
  - Restless legs syndrome [None]
